FAERS Safety Report 25755763 (Version 2)
Quarter: 2025Q3

REPORT INFORMATION
  Report Type: Spontaneous
  Country: US (occurrence: US)
  Receive Date: 20250903
  Receipt Date: 20250910
  Transmission Date: 20251020
  Serious: No
  Sender: TAKEDA
  Company Number: US-TAKEDA-2025TUS077279

PATIENT
  Sex: Male
  Weight: 75 kg

DRUGS (2)
  1. PENTASA [Suspect]
     Active Substance: MESALAMINE
     Indication: Crohn^s disease
     Dosage: 500 MILLIGRAM, QD
     Dates: start: 2009
  2. LIALDA [Suspect]
     Active Substance: MESALAMINE
     Indication: Crohn^s disease

REACTIONS (4)
  - Product use issue [Unknown]
  - Insurance issue [Unknown]
  - Drug ineffective [Unknown]
  - Inability to afford medication [Unknown]
